FAERS Safety Report 18777808 (Version 1)
Quarter: 2021Q1

REPORT INFORMATION
  Report Type: Spontaneous
  Country: US (occurrence: US)
  Receive Date: 20210122
  Receipt Date: 20210122
  Transmission Date: 20210419
  Serious: No
  Sender: FDA-Public Use
  Company Number: 2020SGN04139

PATIENT
  Sex: Female

DRUGS (1)
  1. TUKYSA [Suspect]
     Active Substance: TUCATINIB
     Indication: BREAST CANCER FEMALE
     Dosage: 300 MG, BID
     Route: 065

REACTIONS (15)
  - Blood bilirubin increased [Unknown]
  - Lip dry [Unknown]
  - Sensitive skin [Unknown]
  - White blood cell count decreased [Unknown]
  - Lymphadenopathy [Unknown]
  - Skin discolouration [Unknown]
  - Rash pruritic [Unknown]
  - Abdominal discomfort [Unknown]
  - Blister [Unknown]
  - Diarrhoea [Unknown]
  - Palmar-plantar erythrodysaesthesia syndrome [Not Recovered/Not Resolved]
  - Neck mass [Unknown]
  - Oral pain [Unknown]
  - Liver function test increased [Unknown]
  - Erythema [Unknown]
